FAERS Safety Report 7791414-0 (Version None)
Quarter: 2011Q4

REPORT INFORMATION
  Report Type: 
  Country: None (occurrence: None)
  Receive Date: 20111003
  Receipt Date: 20110921
  Transmission Date: 20120403
  Serious: Yes (Other)
  Sender: FDA-Public Use
  Company Number: CA-JNJFOC-20110805812

PATIENT
  Sex: Female
  Weight: 86 kg

DRUGS (5)
  1. LODOXAMIDE TROMETHAMINE [Concomitant]
  2. REMICADE [Suspect]
     Indication: CROHN'S DISEASE
     Route: 042
     Dates: start: 20110809
  3. PREDNISONE [Concomitant]
     Dosage: 8 CAPS IN ONE DAY IN DECREASING DOSES SINCE AUG 2004.
  4. VITAMIN D W/ CALCIUM [Concomitant]
  5. IRON [Concomitant]

REACTIONS (9)
  - SENSE OF OPPRESSION [None]
  - CHOKING SENSATION [None]
  - INFUSION RELATED REACTION [None]
  - MALAISE [None]
  - DYSPNOEA [None]
  - FEELING HOT [None]
  - COUGH [None]
  - ANXIETY [None]
  - HEART RATE INCREASED [None]
